FAERS Safety Report 24754270 (Version 1)
Quarter: 2024Q4

REPORT INFORMATION
  Report Type: Spontaneous
  Country: RO (occurrence: RO)
  Receive Date: 20241219
  Receipt Date: 20241219
  Transmission Date: 20250114
  Serious: Yes (Death, Other)
  Sender: SANOFI AVENTIS
  Company Number: RO-SA-2024SA367590

PATIENT
  Age: 56 Year
  Sex: Male

DRUGS (1)
  1. DUPIXENT [Suspect]
     Active Substance: DUPILUMAB
     Indication: Dermatitis atopic
     Dosage: UNK

REACTIONS (3)
  - Death [Fatal]
  - Pneumonia [Fatal]
  - Condition aggravated [Fatal]

NARRATIVE: CASE EVENT DATE: 20241210
